FAERS Safety Report 5746240-0 (Version None)
Quarter: 2008Q2

REPORT INFORMATION
  Report Type: 
  Country: None (occurrence: None)
  Receive Date: 20080522
  Receipt Date: 20080519
  Transmission Date: 20081010
  Serious: Yes (Death, Other)
  Sender: FDA-Public Use
  Company Number: PHBS2008BR04577

PATIENT
  Age: 66 Year
  Sex: Male

DRUGS (3)
  1. BASILIXIMAB [Suspect]
     Indication: SMALL INTESTINE TRANSPLANT
     Dosage: UNK, UNK
     Route: 042
     Dates: start: 20051211
  2. TACROLIMUS [Suspect]
     Indication: SMALL INTESTINE TRANSPLANT
     Route: 042
  3. CORTICOSTEROIDS [Suspect]
     Indication: SMALL INTESTINE TRANSPLANT
     Route: 042

REACTIONS (7)
  - ABDOMINAL COMPARTMENT SYNDROME [None]
  - GASTROINTESTINAL INFLAMMATION [None]
  - INTESTINE TRANSPLANT REJECTION [None]
  - MULTI-ORGAN FAILURE [None]
  - RETRO-PERITONEAL SPACE OPERATION [None]
  - SEPTIC SHOCK [None]
  - STAPHYLOCOCCAL IDENTIFICATION TEST POSITIVE [None]
